FAERS Safety Report 9669662 (Version 1)
Quarter: 2013Q4

REPORT INFORMATION
  Report Type: Spontaneous
  Country: US (occurrence: None)
  Receive Date: 20131104
  Receipt Date: 20131104
  Transmission Date: 20140711
  Serious: No
  Sender: FDA-Public Use
  Company Number: None

PATIENT
  Age: 71 Year
  Sex: Female
  Weight: 88.45 kg

DRUGS (12)
  1. PATADAY [Suspect]
     Indication: HYPERSENSITIVITY
     Dosage: 0.2%   1XD  EYE  DROP
     Dates: start: 20130525, end: 20130613
  2. PATADAY [Suspect]
     Indication: DRY EYE
     Dosage: 0.2%   1XD  EYE  DROP
     Dates: start: 20130525, end: 20130613
  3. SINTHROID [Concomitant]
  4. MULTI VIT [Concomitant]
  5. FISH OIL [Concomitant]
  6. COQ10 [Concomitant]
  7. CAL MAG [Concomitant]
  8. V E [Concomitant]
  9. V C [Concomitant]
  10. B  COMPLEX [Concomitant]
  11. LYCOPENE [Concomitant]
  12. RESVERATROL [Concomitant]

REACTIONS (3)
  - Vision blurred [None]
  - Eyelid oedema [None]
  - Foreign body sensation in eyes [None]
